FAERS Safety Report 13542063 (Version 3)
Quarter: 2017Q2

REPORT INFORMATION
  Report Type: Report from Study
  Country: US (occurrence: US)
  Receive Date: 20170512
  Receipt Date: 20170530
  Transmission Date: 20170830
  Serious: Yes (Death, Hospitalization, Other)
  Sender: FDA-Public Use
  Company Number: US-BRISTOL-MYERS SQUIBB COMPANY-BMS-2017-040986

PATIENT
  Age: 59 Year
  Sex: Male

DRUGS (7)
  1. LOVENOX [Concomitant]
     Active Substance: ENOXAPARIN SODIUM
     Indication: PRODUCT USED FOR UNKNOWN INDICATION
     Dosage: 60 MG, BID
     Route: 065
     Dates: start: 20170423, end: 20170423
  2. NIVOLUMAB [Suspect]
     Active Substance: NIVOLUMAB
     Indication: METASTATIC MALIGNANT MELANOMA
     Route: 065
  3. COMPAZINE                          /00013302/ [Concomitant]
     Active Substance: PROCHLORPERAZINE EDISYLATE
     Indication: PRODUCT USED FOR UNKNOWN INDICATION
     Route: 065
  4. IPILIMUMAB [Suspect]
     Active Substance: IPILIMUMAB
     Indication: METASTATIC MALIGNANT MELANOMA
     Route: 065
  5. FENTYL [Concomitant]
     Active Substance: FENTANYL
     Indication: PRODUCT USED FOR UNKNOWN INDICATION
     Route: 062
  6. DOCUSATE SODIUM. [Concomitant]
     Active Substance: DOCUSATE SODIUM
     Indication: PRODUCT USED FOR UNKNOWN INDICATION
     Route: 065
  7. IBUPROFEN. [Concomitant]
     Active Substance: IBUPROFEN
     Indication: PRODUCT USED FOR UNKNOWN INDICATION
     Route: 065

REACTIONS (4)
  - Malignant neoplasm progression [Fatal]
  - Sepsis [Unknown]
  - Hepatic failure [Fatal]
  - Bile duct obstruction [Unknown]

NARRATIVE: CASE EVENT DATE: 20170422
